FAERS Safety Report 9335142 (Version 6)
Quarter: 2015Q3

REPORT INFORMATION
  Report Type: Spontaneous
  Country: US (occurrence: US)
  Receive Date: 20130606
  Receipt Date: 20150818
  Transmission Date: 20151125
  Serious: Yes (Hospitalization, Other)
  Sender: FDA-Public Use
  Company Number: US-009507513-1305USA017093

PATIENT
  Sex: Female
  Weight: 101.13 kg

DRUGS (2)
  1. FOSAMAX [Suspect]
     Active Substance: ALENDRONATE SODIUM
     Indication: OSTEOPOROSIS
     Dosage: 70 MG, QW
     Route: 048
     Dates: start: 2003, end: 2011
  2. ALENDRONATE SODIUM. [Suspect]
     Active Substance: ALENDRONATE SODIUM
     Indication: OSTEOPOROSIS
     Dosage: 70 MG, QW
     Route: 048
     Dates: start: 200803

REACTIONS (18)
  - Knee arthroplasty [Unknown]
  - Hysterectomy [Unknown]
  - Insomnia [Unknown]
  - Femur fracture [Unknown]
  - Hypertension [Unknown]
  - Hypothyroidism [Unknown]
  - Appendicectomy [Unknown]
  - Fall [Unknown]
  - Bladder operation [Unknown]
  - Depression [Unknown]
  - Diabetes mellitus [Unknown]
  - Osteopenia [Unknown]
  - Gastrooesophageal reflux disease [Unknown]
  - Cardiac failure congestive [Unknown]
  - Chronic obstructive pulmonary disease [Unknown]
  - Thyroidectomy [Unknown]
  - Cholecystectomy [Unknown]
  - Anxiety [Unknown]

NARRATIVE: CASE EVENT DATE: 20030905
